FAERS Safety Report 12296950 (Version 6)
Quarter: 2018Q2

REPORT INFORMATION
  Report Type: Report from Study
  Country: BR (occurrence: BR)
  Receive Date: 20160422
  Receipt Date: 20180619
  Transmission Date: 20180711
  Serious: Yes (Hospitalization, Other)
  Sender: FDA-Public Use
  Company Number: PHHY2016BR054683

PATIENT
  Age: 34 Year
  Sex: Female
  Weight: 95 kg

DRUGS (2)
  1. GLIVEC [Suspect]
     Active Substance: IMATINIB MESYLATE
     Indication: CHRONIC MYELOID LEUKAEMIA
     Dosage: UNK UKN, UNK
     Route: 048
     Dates: start: 201601, end: 20160401
  2. TASIGNA [Suspect]
     Active Substance: NILOTINIB
     Indication: CHRONIC MYELOID LEUKAEMIA
     Dosage: 2 DF, BID (2 IN THE MORNING AND 2 AT NIGHT)
     Route: 048
     Dates: start: 20160413

REACTIONS (25)
  - Liver disorder [Unknown]
  - Malaise [Recovering/Resolving]
  - Hepatomegaly [Not Recovered/Not Resolved]
  - Pain [Unknown]
  - Abdominal pain upper [Recovering/Resolving]
  - Dental cyst [Unknown]
  - Nervousness [Unknown]
  - Teeth brittle [Unknown]
  - Pain in extremity [Unknown]
  - Movement disorder [Recovering/Resolving]
  - Chest pain [Unknown]
  - Pericarditis [Unknown]
  - Fatigue [Not Recovered/Not Resolved]
  - Nausea [Unknown]
  - Cytogenetic analysis abnormal [Unknown]
  - Stress [Unknown]
  - Headache [Not Recovered/Not Resolved]
  - Dyspnoea [Recovering/Resolving]
  - H1N1 influenza [Recovered/Resolved]
  - Rash [Unknown]
  - Anxiety [Unknown]
  - Panic attack [Unknown]
  - Depressed mood [Unknown]
  - Influenza [Unknown]
  - Drug ineffective [Unknown]

NARRATIVE: CASE EVENT DATE: 201603
